FAERS Safety Report 16659199 (Version 2)
Quarter: 2019Q3

REPORT INFORMATION
  Report Type: Spontaneous
  Country: US (occurrence: US)
  Receive Date: 20190802
  Receipt Date: 20190910
  Transmission Date: 20191004
  Serious: No
  Sender: FDA-Public Use
  Company Number: US-CELGENEUS-USA-20190710547

PATIENT
  Sex: Female

DRUGS (1)
  1. OTEZLA [Suspect]
     Active Substance: APREMILAST
     Indication: PSORIASIS
     Dosage: 60 MILLIGRAM
     Route: 048
     Dates: start: 201812

REACTIONS (4)
  - Psoriasis [Unknown]
  - Pain in extremity [Unknown]
  - Blood potassium increased [Unknown]
  - Stress [Unknown]

NARRATIVE: CASE EVENT DATE: 2019
